FAERS Safety Report 4500181-5 (Version None)
Quarter: 2004Q3

REPORT INFORMATION
  Report Type: 
  Country: None (occurrence: None)
  Receive Date: 20040927
  Receipt Date: 20040715
  Transmission Date: 20050211
  Serious: No
  Sender: FDA-Public Use
  Company Number: USA040772786

PATIENT
  Age: 35 Year
  Sex: Male
  Weight: 109 kg

DRUGS (4)
  1. STRATTERA [Suspect]
     Indication: ATTENTION DEFICIT/HYPERACTIVITY DISORDER
     Dosage: 40 MG IN THE MORNING
     Dates: start: 20040714
  2. PROZAC [Suspect]
     Indication: DEPRESSION
     Dosage: 20 MG
  3. TRAMADOL HCL [Concomitant]
  4. XANAX (ALPRAZOLAM DUM) [Concomitant]

REACTIONS (2)
  - HEADACHE [None]
  - MYDRIASIS [None]
